FAERS Safety Report 9863917 (Version 2)
Quarter: 2014Q1

REPORT INFORMATION
  Report Type: Spontaneous
  Country: GB (occurrence: GB)
  Receive Date: 20140203
  Receipt Date: 20140203
  Transmission Date: 20141002
  Serious: Yes (Death, Hospitalization, Other)
  Sender: FDA-Public Use
  Company Number: GB-TAKEDA-THQ2010A03381

PATIENT
  Sex: 0

DRUGS (17)
  1. LANSOPRAZOLE [Suspect]
     Indication: DUODENAL ULCER
     Dosage: UNK
     Dates: start: 20020301
  2. PROPOFOL [Suspect]
     Indication: ANAESTHESIA
     Dosage: UNK
     Route: 042
     Dates: start: 200203, end: 200203
  3. LISINOPRIL [Suspect]
     Indication: HYPERTENSION
     Dosage: UNK
     Route: 048
     Dates: start: 20020301
  4. GLYCERYL TRINITRATE [Suspect]
     Indication: PAIN
     Dosage: UNK
     Route: 048
     Dates: start: 20020301
  5. CO-CODAMOL [Suspect]
     Indication: RHEUMATOID ARTHRITIS
     Dosage: UNK
     Dates: start: 20020301
  6. ARAVA [Suspect]
     Indication: RHEUMATOID ARTHRITIS
     Dosage: 20 MG, QD
     Route: 048
     Dates: start: 200203
  7. DILTIAZEM HYDROCHLORIDE [Suspect]
     Indication: HYPERTENSION
     Dosage: UNK
     Dates: end: 200203
  8. ASPIRIN [Suspect]
     Indication: PAIN
     Dosage: UNK
     Dates: start: 20020301
  9. BUDESONIDE [Suspect]
     Indication: ASTHMA
     Dosage: UNK
     Route: 050
     Dates: start: 20020301
  10. ATORVASTATIN [Suspect]
     Indication: HYPERCHOLESTEROLAEMIA
     Dosage: UNK
     Dates: start: 1999
  11. QUININE SULFATE [Suspect]
     Indication: MUSCLE SPASMS
     Dosage: UNK
  12. QUININE SULFATE [Suspect]
     Indication: MUSCLE SPASMS
  13. MIDAZOLAM [Suspect]
     Indication: ANAESTHESIA
     Dosage: UNK
     Route: 042
     Dates: start: 200203, end: 200203
  14. FENTANYL [Suspect]
     Indication: ANAESTHESIA
     Dosage: UNK
     Route: 042
     Dates: start: 200203, end: 200203
  15. PANCURONIUM BROMIDE [Suspect]
     Indication: MUSCLE RELAXANT THERAPY
     Dosage: UNK
     Dates: start: 200203, end: 200203
  16. FLIXONASE [Concomitant]
     Indication: PRODUCT USED FOR UNKNOWN INDICATION
     Dosage: UNK
  17. GTN [Concomitant]
     Indication: PRODUCT USED FOR UNKNOWN INDICATION
     Dosage: UNK

REACTIONS (12)
  - Multi-organ failure [Fatal]
  - Gastrointestinal haemorrhage [Fatal]
  - Diverticulitis [Fatal]
  - Intestinal ischaemia [Fatal]
  - Haematemesis [Fatal]
  - Renal failure [Fatal]
  - Acute hepatic failure [Fatal]
  - Labile blood pressure [Fatal]
  - Coronary artery disease [Fatal]
  - Duodenal ulcer [Fatal]
  - Abdominal rigidity [Unknown]
  - Abdominal pain upper [Unknown]
